FAERS Safety Report 11055798 (Version 10)
Quarter: 2016Q1

REPORT INFORMATION
  Report Type: Report from Study
  Country: BE (occurrence: BE)
  Receive Date: 20150422
  Receipt Date: 20160222
  Transmission Date: 20160525
  Serious: Yes (Death, Other)
  Sender: FDA-Public Use
  Company Number: BE-ABBVIE-15P-013-1372922-00

PATIENT
  Age: 73 Year
  Sex: Female

DRUGS (5)
  1. DUODOPA [Suspect]
     Active Substance: CARBIDOPA\LEVODOPA
     Indication: PARKINSON^S DISEASE
     Dosage: AM DOSE=5ML, CD=2.4ML/H FOR 16HRS AND ED=1.5ML
     Route: 050
     Dates: start: 20100302, end: 20100329
  2. DUODOPA [Suspect]
     Active Substance: CARBIDOPA\LEVODOPA
     Dosage: AM = 3 ML, CD = 3 ML/H DURING 16H, ED = 2 ML, ND = 3 ML/H DURING 8H
     Route: 050
     Dates: start: 20150428, end: 20151015
  3. DUODOPA [Suspect]
     Active Substance: CARBIDOPA\LEVODOPA
     Dosage: AM DOSE=6ML, CD=3.3ML/H FOR 16HRS AND ED=2ML
     Route: 050
     Dates: start: 20150326, end: 20150428
  4. DUODOPA [Suspect]
     Active Substance: CARBIDOPA\LEVODOPA
     Dosage: DOSAGE CONTINUOUSLY MONITORED AND ADJUSTED
     Route: 050
     Dates: start: 20100329, end: 20150326
  5. DUODOPA [Suspect]
     Active Substance: CARBIDOPA\LEVODOPA
     Dosage: AM=3ML; CD=3.1ML/HR DURING 16HRS; ED=1.8ML; ND=3.1ML/HR DURING 8 HRS
     Route: 050
     Dates: start: 20151015

REACTIONS (14)
  - Glaucoma [Recovering/Resolving]
  - Depressed mood [Unknown]
  - Device connection issue [Unknown]
  - Death [Fatal]
  - Hallucination, auditory [Unknown]
  - Freezing phenomenon [Not Recovered/Not Resolved]
  - Anxiety [Not Recovered/Not Resolved]
  - Depression [Unknown]
  - Therapy cessation [Unknown]
  - Hallucination, visual [Unknown]
  - Cognitive disorder [Unknown]
  - Visual acuity reduced [Unknown]
  - Device issue [Unknown]
  - Device use error [Unknown]

NARRATIVE: CASE EVENT DATE: 20160103
